FAERS Safety Report 7993545-9 (Version None)
Quarter: 2011Q4

REPORT INFORMATION
  Report Type: 
  Country: None (occurrence: None)
  Receive Date: 20111219
  Receipt Date: 20111214
  Transmission Date: 20120403
  Serious: Yes (Life-Threatening)
  Sender: FDA-Public Use
  Company Number: RU-ASTRAZENECA-2011SE75645

PATIENT
  Age: 55 Year
  Sex: Female
  Weight: 55 kg

DRUGS (2)
  1. NAROPIN [Suspect]
     Indication: ANAESTHESIA
     Dosage: 5 MG 10 ML WAS ADMINISTERED ONCE
     Route: 050
     Dates: start: 20110101, end: 20110101
  2. MARCAINE [Concomitant]
     Indication: SPINAL ANAESTHESIA
     Dosage: ONCE/SINGLE ADMINISTRATION, DOSE WAS LESS THAN USUAL
     Route: 037
     Dates: start: 20110101, end: 20110101

REACTIONS (1)
  - HYPOVOLAEMIC SHOCK [None]
